FAERS Safety Report 7469348-0 (Version None)
Quarter: 2011Q2

REPORT INFORMATION
  Report Type: 
  Country: None (occurrence: None)
  Receive Date: 20110510
  Receipt Date: 20110425
  Transmission Date: 20111010
  Serious: No
  Sender: FDA-Public Use
  Company Number: US-ELI_LILLY_AND_COMPANY-US201104000447

PATIENT
  Sex: Female
  Weight: 63.039 kg

DRUGS (9)
  1. ATENOLOL [Concomitant]
  2. OSCAL [Concomitant]
  3. COLACE [Concomitant]
  4. DULCOLAX [Concomitant]
  5. ASPIRIN [Concomitant]
  6. OMEPRAZOLE [Concomitant]
  7. VITAMIN D [Concomitant]
  8. FORTEO [Suspect]
     Indication: HUMERUS FRACTURE
     Dosage: 20 UG, QD
     Route: 058
     Dates: start: 20110321
  9. VICODIN [Concomitant]

REACTIONS (1)
  - NO ADVERSE EVENT [None]
